FAERS Safety Report 7968606-0 (Version None)
Quarter: 2011Q4

REPORT INFORMATION
  Report Type: 
  Country: None (occurrence: None)
  Receive Date: 20111209
  Receipt Date: 20111205
  Transmission Date: 20120403
  Serious: Yes (Hospitalization, Other)
  Sender: FDA-Public Use
  Company Number: IT-ROXANE LABORATORIES, INC.-2011-RO-01749RO

PATIENT
  Age: 53 Year
  Sex: Female

DRUGS (6)
  1. PEGINTERFERON ALFA-2A [Suspect]
     Indication: GLOMERULONEPHRITIS MEMBRANOPROLIFERATIVE
  2. CORTICOSTEROIDS [Suspect]
     Indication: NEPHROTIC SYNDROME
  3. CYCLOSPORINE [Suspect]
     Indication: RENAL IMPAIRMENT
  4. RAMIPRIL [Suspect]
     Indication: NEPHROTIC SYNDROME
  5. RITUXIMAB [Suspect]
     Indication: GLOMERULONEPHRITIS MEMBRANOPROLIFERATIVE
  6. CYCLOSPORINE [Suspect]

REACTIONS (3)
  - CHRONIC HEPATITIS [None]
  - HYPERTRANSAMINASAEMIA [None]
  - GLOMERULONEPHRITIS MEMBRANOPROLIFERATIVE [None]
